FAERS Safety Report 18802709 (Version 1)
Quarter: 2021Q1

REPORT INFORMATION
  Report Type: Spontaneous
  Country: US (occurrence: US)
  Receive Date: 20210128
  Receipt Date: 20210128
  Transmission Date: 20210419
  Serious: No
  Sender: FDA-Public Use
  Company Number: US-PERRIGO-20US016565

PATIENT
  Sex: Female

DRUGS (2)
  1. TRETINOIN 0.05% CREAM (2L4) [Suspect]
     Active Substance: TRETINOIN
     Indication: ACNE
     Dosage: SMALL AMOUNT, NIGHTLY
     Route: 061
     Dates: start: 20201112, end: 20201114
  2. TRETINOIN 0.05% CREAM (2L4) [Suspect]
     Active Substance: TRETINOIN
     Indication: SKIN EXFOLIATION

REACTIONS (5)
  - Application site pruritus [Not Recovered/Not Resolved]
  - Skin tightness [Recovered/Resolved]
  - Application site exfoliation [Not Recovered/Not Resolved]
  - Papule [Recovered/Resolved]
  - Off label use [Recovered/Resolved]

NARRATIVE: CASE EVENT DATE: 202011
